FAERS Safety Report 4523276-9 (Version None)
Quarter: 2004Q4

REPORT INFORMATION
  Report Type: 
  Country: None (occurrence: None)
  Receive Date: 20041210
  Receipt Date: 20041129
  Transmission Date: 20050328
  Serious: Yes (Hospitalization, Other)
  Sender: FDA-Public Use
  Company Number: GB-JNJFOC-20041106352

PATIENT
  Sex: Male
  Weight: 85 kg

DRUGS (5)
  1. REMICADE [Suspect]
     Indication: RHEUMATOID ARTHRITIS
     Route: 042
  2. LEFLUNOMIDE [Concomitant]
  3. VOLTAREN [Concomitant]
  4. TRAMADOL HCL [Concomitant]
  5. LOSEC [Concomitant]

REACTIONS (2)
  - CONFUSIONAL STATE [None]
  - LEGIONELLA INFECTION [None]
